FAERS Safety Report 6792986-5 (Version None)
Quarter: 2010Q2

REPORT INFORMATION
  Report Type: 
  Country: None (occurrence: None)
  Receive Date: 20100624
  Receipt Date: 20090109
  Transmission Date: 20101027
  Serious: Yes (Other)
  Sender: FDA-Public Use
  Company Number: US-PFIZER INC-2008088137

PATIENT
  Sex: Male
  Weight: 90.7 kg

DRUGS (2)
  1. GEODON [Suspect]
     Indication: AFFECTIVE DISORDER
     Dates: start: 20080630, end: 20080806
  2. EFFEXOR [Concomitant]

REACTIONS (3)
  - DYSPNOEA [None]
  - HYPERSENSITIVITY [None]
  - RASH [None]
